FAERS Safety Report 21064817 (Version 1)
Quarter: 2022Q3

REPORT INFORMATION
  Report Type: Report from Study
  Country: PH (occurrence: None)
  Receive Date: 20220711
  Receipt Date: 20220711
  Transmission Date: 20221026
  Serious: Yes (Death, Other)
  Sender: FDA-Public Use
  Company Number: 2022A246652

PATIENT
  Age: 29564 Day
  Sex: Male

DRUGS (1)
  1. IRESSA [Suspect]
     Active Substance: GEFITINIB
     Indication: Lung neoplasm malignant
     Route: 048
     Dates: start: 202107, end: 202112

REACTIONS (2)
  - Decreased appetite [Fatal]
  - Malnutrition [Unknown]

NARRATIVE: CASE EVENT DATE: 20211218
